FAERS Safety Report 12435795 (Version 1)
Quarter: 2016Q2

REPORT INFORMATION
  Report Type: Spontaneous
  Country: US (occurrence: US)
  Receive Date: 20160603
  Receipt Date: 20160603
  Transmission Date: 20160815
  Serious: No
  Sender: FDA-Public Use
  Company Number: US-009507513-1606USA000913

PATIENT
  Sex: Female
  Weight: 70.31 kg

DRUGS (2)
  1. OSPHENA [Concomitant]
     Active Substance: OSPEMIFENE
     Dosage: 60 MG, QD
     Route: 048
     Dates: start: 201511, end: 201604
  2. PRINIVIL [Suspect]
     Active Substance: LISINOPRIL
     Indication: ALBUMIN URINE PRESENT
     Dosage: 2.5 MG, QD
     Route: 048
     Dates: start: 201603

REACTIONS (2)
  - Urinary tract infection [Recovered/Resolved]
  - Product use issue [Unknown]

NARRATIVE: CASE EVENT DATE: 2016
